FAERS Safety Report 14424127 (Version 1)
Quarter: 2018Q1

REPORT INFORMATION
  Report Type: Spontaneous
  Country: FR (occurrence: FR)
  Receive Date: 20180123
  Receipt Date: 20180123
  Transmission Date: 20180509
  Serious: Yes (Hospitalization, Other)
  Sender: FDA-Public Use
  Company Number: FR-FRESENIUS KABI-FK201711550

PATIENT
  Age: 77 Year
  Sex: Female

DRUGS (3)
  1. CLINDAMYCIN. [Suspect]
     Active Substance: CLINDAMYCIN
     Indication: ERYSIPELAS
     Route: 048
     Dates: start: 20180104
  2. GENTAMYCINE [Suspect]
     Active Substance: GENTAMICIN
     Indication: ERYSIPELAS
     Route: 042
     Dates: start: 20171221, end: 20171224
  3. CLINDAMYCIN KABI 150 MG / ML [Suspect]
     Active Substance: CLINDAMYCIN PHOSPHATE
     Indication: ERYSIPELAS
     Route: 042
     Dates: start: 20171221, end: 20180104

REACTIONS (2)
  - Infusion site haematoma [Unknown]
  - Infusion site necrosis [Recovered/Resolved]

NARRATIVE: CASE EVENT DATE: 20171227
